FAERS Safety Report 8143363 (Version 3)
Quarter: 2013Q3

REPORT INFORMATION
  Report Type: Report from Study
  Country: BE (occurrence: BE)
  Receive Date: 20110920
  Receipt Date: 20130830
  Transmission Date: 20140515
  Serious: Yes (Life-Threatening, Hospitalization)
  Sender: FDA-Public Use
  Company Number: PHHO2011BE15683

PATIENT
  Age: 87 Year
  Sex: Female
  Weight: 58 kg

DRUGS (4)
  1. ALISKIREN [Suspect]
     Indication: CARDIOVASCULAR DISORDER
     Route: 048
     Dates: start: 20110804
  2. AMLODIPINE [Suspect]
     Dosage: 10 MG, UNK
  3. AMLODIPINE [Suspect]
     Dosage: 5 MG, UNK
  4. PRAZOSIN [Suspect]

REACTIONS (1)
  - Dehydration [Recovered/Resolved]
